FAERS Safety Report 25673633 (Version 1)
Quarter: 2025Q3

REPORT INFORMATION
  Report Type: Spontaneous
  Country: US (occurrence: US)
  Receive Date: 20250813
  Receipt Date: 20250813
  Transmission Date: 20251020
  Serious: Yes (Other)
  Sender: SPECGX
  Company Number: US-SPECGX-T202402178

PATIENT
  Age: 72 Year
  Sex: Male

DRUGS (7)
  1. OXYCODONE [Interacting]
     Active Substance: OXYCODONE
     Indication: Procedural pain
     Route: 065
     Dates: start: 20241023
  2. OXYCODONE [Interacting]
     Active Substance: OXYCODONE
     Dosage: 10 MILLIGRAM, Q6H
     Route: 065
  3. OXYCODONE [Interacting]
     Active Substance: OXYCODONE
     Route: 065
     Dates: end: 20241029
  4. PAROXETINE [Interacting]
     Active Substance: PAROXETINE
     Indication: Product used for unknown indication
     Route: 065
  5. WARFARIN [Concomitant]
     Active Substance: WARFARIN
     Indication: Product used for unknown indication
     Route: 065
  6. DIGOXIN [Concomitant]
     Active Substance: DIGOXIN
     Indication: Product used for unknown indication
     Route: 065
  7. METOPROLOL [Concomitant]
     Active Substance: METOPROLOL
     Indication: Product used for unknown indication
     Route: 065

REACTIONS (10)
  - Serotonin syndrome [Recovered/Resolved]
  - Drug interaction [Recovered/Resolved]
  - Aphasia [Recovered/Resolved]
  - Affect lability [Recovered/Resolved]
  - Mental disorder [Recovered/Resolved]
  - Nausea [Recovered/Resolved]
  - Constipation [Recovered/Resolved]
  - Intentional product use issue [Unknown]
  - Wrong technique in product usage process [Unknown]
  - Drug effect less than expected [Unknown]

NARRATIVE: CASE EVENT DATE: 20241001
